FAERS Safety Report 15866806 (Version 1)
Quarter: 2019Q1

REPORT INFORMATION
  Report Type: Spontaneous
  Country: US (occurrence: US)
  Receive Date: 20190102
  Receipt Date: 20190102
  Transmission Date: 20190417
  Serious: Yes (Other)
  Sender: FDA-Public Use
  Company Number: None

PATIENT
  Age: 21 Year
  Sex: Female
  Weight: 71.21 kg

DRUGS (1)
  1. LOW-OGESTREL [Suspect]
     Active Substance: ETHINYL ESTRADIOL\NORGESTREL
     Indication: MENSTRUATION IRREGULAR
     Route: 048
     Dates: start: 20131001

REACTIONS (8)
  - Skin irritation [None]
  - Abdominal distension [None]
  - Initial insomnia [None]
  - Middle insomnia [None]
  - Dysmenorrhoea [None]
  - Menorrhagia [None]
  - Abdominal pain lower [None]
  - Acne [None]

NARRATIVE: CASE EVENT DATE: 20131001
